FAERS Safety Report 9311287 (Version 3)
Quarter: 2014Q2

REPORT INFORMATION
  Report Type: Report from Study
  Country: US (occurrence: US)
  Receive Date: 20130528
  Receipt Date: 20140429
  Transmission Date: 20141212
  Serious: Yes (Other)
  Sender: FDA-Public Use
  Company Number: US-ASTELLAS-2013US005462

PATIENT
  Sex: 0

DRUGS (2)
  1. ERLOTINIB [Suspect]
     Indication: LUNG NEOPLASM MALIGNANT
     Dosage: 150 MG, DAILY IN 28 DAY CYCLE
     Route: 048
  2. INVESTIGATIONAL DRUG [Suspect]
     Indication: LUNG NEOPLASM MALIGNANT
     Route: 042

REACTIONS (6)
  - Anaemia [Unknown]
  - Constipation [Unknown]
  - Liver function test abnormal [Unknown]
  - Fatigue [Unknown]
  - Cardiac disorder [Unknown]
  - Diarrhoea [Unknown]
